FAERS Safety Report 24667127 (Version 2)
Quarter: 2025Q2

REPORT INFORMATION
  Report Type: Spontaneous
  Country: US (occurrence: US)
  Receive Date: 20241126
  Receipt Date: 20250429
  Transmission Date: 20250716
  Serious: No
  Sender: MERCK SHARP & DOHME LLC
  Company Number: None

PATIENT
  Sex: Female
  Weight: 60.8 kg

DRUGS (23)
  1. SOTATERCEPT [Suspect]
     Active Substance: SOTATERCEPT
  2. SOTATERCEPT [Suspect]
     Active Substance: SOTATERCEPT
  3. SOTATERCEPT [Suspect]
     Active Substance: SOTATERCEPT
  4. TYVASO [Suspect]
     Active Substance: TREPROSTINIL
     Indication: Pulmonary arterial hypertension
     Dosage: DOSE DESCRIPTION : 64 MICROGRAM, QID?DAILY DOSE : 256 MICROGRAM?CONCENTRATION: 64 MICROGRAM
     Route: 055
     Dates: start: 20240628
  5. TYLENOL [Concomitant]
     Active Substance: ACETAMINOPHEN
  6. SODIUM CHLORIDE [Concomitant]
     Active Substance: SODIUM CHLORIDE
  7. ROSUVASTATIN CALCIUM [Concomitant]
     Active Substance: ROSUVASTATIN CALCIUM
  8. OPSUMIT [Concomitant]
     Active Substance: MACITENTAN
  9. SILDENAFIL CITRATE [Concomitant]
     Active Substance: SILDENAFIL CITRATE
  10. ALENDRONATE SODIUM [Concomitant]
     Active Substance: ALENDRONATE SODIUM
  11. CLARITIN [Concomitant]
     Active Substance: LORATADINE
  12. OXYGEN [Concomitant]
     Active Substance: OXYGEN
  13. GAS-X [Concomitant]
     Active Substance: DIMETHICONE
  14. LEVOTHYROXINE [Concomitant]
     Active Substance: LEVOTHYROXINE
  15. CARVEDILOL [Concomitant]
     Active Substance: CARVEDILOL
  16. CARVEDILOL [Concomitant]
     Active Substance: CARVEDILOL
  17. FUROSEMIDE [Concomitant]
     Active Substance: FUROSEMIDE
  18. MUCINEX [Concomitant]
     Active Substance: GUAIFENESIN
  19. LOSARTAN POTASSIUM [Concomitant]
     Active Substance: LOSARTAN POTASSIUM
  20. ASPIRIN [Concomitant]
     Active Substance: ASPIRIN
  21. MULTAQ [Concomitant]
     Active Substance: DRONEDARONE
  22. TREPROSTINIL [Suspect]
     Active Substance: TREPROSTINIL
     Indication: Pulmonary arterial hypertension
     Route: 055
  23. MACITENTAN\TADALAFIL [Concomitant]
     Active Substance: MACITENTAN\TADALAFIL

REACTIONS (3)
  - Alopecia [Not Recovered/Not Resolved]
  - Heart rate increased [Unknown]
  - Blood pressure increased [Unknown]

NARRATIVE: CASE EVENT DATE: 20240101
